FAERS Safety Report 19798894 (Version 2)
Quarter: 2021Q3

REPORT INFORMATION
  Report Type: Report from Study
  Country: IT (occurrence: IT)
  Receive Date: 20210907
  Receipt Date: 20210910
  Transmission Date: 20211014
  Serious: Yes (Death)
  Sender: FDA-Public Use
  Company Number: IT-TEVA-2021-IT-1948994

PATIENT
  Age: 65 Year
  Sex: Female
  Weight: 61 kg

DRUGS (1)
  1. PACLITAXEL TEVA ITALIA [Suspect]
     Active Substance: PACLITAXEL
     Indication: ENDOMETRIAL ADENOCARCINOMA
     Dosage: 230 MG
     Route: 042
     Dates: start: 20210817, end: 20210817

REACTIONS (5)
  - Acute pulmonary oedema [Fatal]
  - Troponin increased [Fatal]
  - Tachycardia [Fatal]
  - Oxygen saturation decreased [Fatal]
  - Dyspnoea [Fatal]

NARRATIVE: CASE EVENT DATE: 20210817
